FAERS Safety Report 9038010 (Version 1)
Quarter: 2013Q1

REPORT INFORMATION
  Report Type: Report from Study
  Country: US (occurrence: US)
  Receive Date: 20130129
  Receipt Date: 20130129
  Transmission Date: 20140127
  Serious: No
  Sender: FDA-Public Use
  Company Number: US-ABBOTT-12P-163-0925871-00

PATIENT
  Sex: Male

DRUGS (10)
  1. HUMIRA 40 MG/0.8 ML PEN [Suspect]
     Indication: PSORIATIC ARTHROPATHY
     Dates: start: 20120406
  2. EFFEXOR [Concomitant]
     Indication: PRODUCT USED FOR UNKNOWN INDICATION
  3. SEROQUEL [Concomitant]
     Indication: PRODUCT USED FOR UNKNOWN INDICATION
  4. KLONOPIN [Concomitant]
     Indication: HEADACHE
  5. ADDERALL [Concomitant]
     Indication: ATTENTION DEFICIT/HYPERACTIVITY DISORDER
     Dosage: IN THE MORNING
  6. ADDERALL [Concomitant]
     Dosage: AT NOON
  7. ZOLPIDEM [Concomitant]
     Indication: INSOMNIA
  8. PRAVASTATIN [Concomitant]
     Indication: BLOOD TRIGLYCERIDES INCREASED
  9. PRAVASTATIN [Concomitant]
     Indication: HEPATIC STEATOSIS
  10. PROTONIX [Concomitant]
     Indication: ABDOMINAL DISCOMFORT

REACTIONS (2)
  - Injection site pain [Recovered/Resolved]
  - Injection site pain [Recovered/Resolved]
